FAERS Safety Report 8503057-1 (Version None)
Quarter: 2012Q3

REPORT INFORMATION
  Report Type: 
  Country: None (occurrence: None)
  Receive Date: 20120711
  Receipt Date: 20120703
  Transmission Date: 20120928
  Serious: Yes (Other)
  Sender: FDA-Public Use
  Company Number: ES-ELI_LILLY_AND_COMPANY-ES201207000960

PATIENT
  Sex: Female

DRUGS (1)
  1. FORTEO [Suspect]
     Dosage: UNK
     Dates: start: 20110318

REACTIONS (5)
  - PAIN IN EXTREMITY [None]
  - DIZZINESS [None]
  - LISTLESS [None]
  - KNEE ARTHROPLASTY [None]
  - PARAESTHESIA [None]
